FAERS Safety Report 5421658-4 (Version None)
Quarter: 2007Q3

REPORT INFORMATION
  Report Type: 
  Country: None (occurrence: None)
  Receive Date: 20070821
  Receipt Date: 20070814
  Transmission Date: 20080115
  Serious: Yes (Death, Life-Threatening, Hospitalization, Other)
  Sender: FDA-Public Use
  Company Number: CZ-PFIZER INC-2007065242

PATIENT
  Age: 34 Year
  Sex: Female

DRUGS (2)
  1. METHYLPREDNISOLONE ACETATE [Suspect]
     Indication: THROMBOTIC THROMBOCYTOPENIC PURPURA
     Route: 042
  2. LITHIUM CARBONATE [Concomitant]
     Route: 048

REACTIONS (16)
  - ARTHRALGIA [None]
  - BLOOD CREATININE INCREASED [None]
  - CIRCULATORY COLLAPSE [None]
  - CLONUS [None]
  - DEPRESSED LEVEL OF CONSCIOUSNESS [None]
  - GENERAL PHYSICAL HEALTH DETERIORATION [None]
  - HAEMORRHAGIC DIATHESIS [None]
  - LIVER DISORDER [None]
  - MICROANGIOPATHIC HAEMOLYTIC ANAEMIA [None]
  - PERICARDIAL EFFUSION [None]
  - RASH [None]
  - RENAL DISORDER [None]
  - RESPIRATORY ARREST [None]
  - SHOCK [None]
  - THROMBOTIC THROMBOCYTOPENIC PURPURA [None]
  - VIRAL INFECTION [None]
